FAERS Safety Report 7900540-4 (Version None)
Quarter: 2011Q4

REPORT INFORMATION
  Report Type: 
  Country: None (occurrence: None)
  Receive Date: 20111108
  Receipt Date: 20111025
  Transmission Date: 20120403
  Serious: Yes (Hospitalization)
  Sender: FDA-Public Use
  Company Number: US-MYLANLABS-2011S1022520

PATIENT
  Age: 37 Year
  Sex: Female

DRUGS (6)
  1. INSULIN [Suspect]
     Indication: CARDIOGENIC SHOCK
     Route: 040
  2. INSULIN [Suspect]
     Dosage: 70-770 IU/H
     Route: 041
  3. PROPRANOLOL [Suspect]
     Indication: OVERDOSE
     Route: 048
  4. CITALOPRAM HYDROBROMIDE [Suspect]
     Indication: OVERDOSE
     Route: 048
  5. BUPROPION HCL [Suspect]
     Indication: OVERDOSE
     Route: 048
  6. DEXTROSE [Concomitant]
     Dosage: TOTAL DOSE ACCORDING TO TABLE: 926G
     Route: 065

REACTIONS (4)
  - HYPOKALAEMIA [None]
  - CARDIOGENIC SHOCK [None]
  - OVERDOSE [None]
  - HYPOTENSION [None]
